FAERS Safety Report 5744175-0 (Version None)
Quarter: 2008Q2

REPORT INFORMATION
  Report Type: 
  Country: None (occurrence: None)
  Receive Date: 20080516
  Receipt Date: 20080501
  Transmission Date: 20081010
  Serious: Yes (Hospitalization)
  Sender: FDA-Public Use
  Company Number: 2008AL003191

PATIENT
  Sex: Male

DRUGS (15)
  1. DIGOXIN [Suspect]
     Indication: CARDIAC FAILURE CONGESTIVE
     Dosage: 0.125MG DAILY PO
     Route: 048
  2. ELDACTONE [Concomitant]
  3. COREG [Concomitant]
  4. PLAVIX [Concomitant]
  5. IMDUR [Concomitant]
  6. MAGOXCIDE [Concomitant]
  7. BUMETANIDE [Concomitant]
  8. METOLAZONE [Concomitant]
  9. EFFEXOR [Concomitant]
  10. AMARYL [Concomitant]
  11. PRILOSEC [Concomitant]
  12. ASPIRIN [Concomitant]
  13. LANTUS [Concomitant]
  14. NIASPAN ER [Concomitant]
  15. AMIODARONE HCL [Concomitant]

REACTIONS (3)
  - BLOOD PRESSURE SYSTOLIC DECREASED [None]
  - NAUSEA [None]
  - ORAL INTAKE REDUCED [None]
